FAERS Safety Report 13825931 (Version 1)
Quarter: 2017Q3

REPORT INFORMATION
  Report Type: Spontaneous
  Country: BR (occurrence: BR)
  Receive Date: 20170802
  Receipt Date: 20170802
  Transmission Date: 20171127
  Serious: Yes (Hospitalization, Other)
  Sender: FDA-Public Use
  Company Number: BR-009507513-1708BRA000083

PATIENT
  Age: 93 Year
  Sex: Female
  Weight: 71 kg

DRUGS (6)
  1. NEOVITE LUTEIN [Concomitant]
     Indication: VISUAL FIELD DEFECT
     Dosage: 1 TABLET DAILY
     Route: 048
     Dates: start: 2007
  2. ATENOLOL (+) CHLORTHALIDONE [Concomitant]
     Active Substance: ATENOLOL\CHLORTHALIDONE
     Indication: HYPERTENSION
     Dosage: 1 TABLET IN THE MORNING
     Route: 048
     Dates: start: 1987
  3. DIOVAN [Concomitant]
     Active Substance: VALSARTAN
     Indication: HYPERTENSION
     Dosage: 1 TABLET DAILY/ SINCE APPROXIMATELY 15 TO 20 YEARS AGO
     Route: 048
     Dates: start: 1997
  4. PURAN [Concomitant]
     Active Substance: LEVOTHYROXINE SODIUM
     Indication: THYROID DISORDER
     Dosage: 1 TABLET DAILY
     Route: 048
     Dates: start: 1977
  5. ATORVASTATIN CALCIUM. [Concomitant]
     Active Substance: ATORVASTATIN CALCIUM
     Indication: BLOOD CHOLESTEROL INCREASED
     Dosage: 1 TABLET DAILY
     Route: 048
  6. JANUVIA [Suspect]
     Active Substance: SITAGLIPTIN PHOSPHATE
     Dosage: 1 TABLET ONCE A DAY
     Route: 048
     Dates: start: 2014, end: 2015

REACTIONS (3)
  - Blood glucose increased [Unknown]
  - Thrombosis [Unknown]
  - Arrhythmia [Unknown]

NARRATIVE: CASE EVENT DATE: 2014
